FAERS Safety Report 13281165 (Version 1)
Quarter: 2017Q1

REPORT INFORMATION
  Report Type: Report from Study
  Country: JP (occurrence: JP)
  Receive Date: 20170301
  Receipt Date: 20170301
  Transmission Date: 20170428
  Serious: Yes (Other)
  Sender: FDA-Public Use
  Company Number: JP-ACCORD-048512

PATIENT

DRUGS (3)
  1. FLUOROURACIL. [Suspect]
     Active Substance: FLUOROURACIL
     Indication: GASTRIC CANCER
     Dosage: ON DAYS 1, 8, AND 15?PERFORMED IN 4 WEEKS WITH REGIMEN OF 1 COURSE
  2. PACLITAXEL/PACLITAXEL LIPOSOME [Suspect]
     Active Substance: PACLITAXEL
     Indication: GASTRIC CANCER
     Dosage: ON DAYS 1, 8, AND 15.?PERFORMED IN 4 WEEKS WITH REGIMEN OF 1 COURSE
  3. FOLINIC ACID [Suspect]
     Active Substance: LEUCOVORIN
     Indication: GASTRIC CANCER
     Dosage: ON DAYS 1, 8, AND 15.?PERFORMED IN 4 WEEKS WITH REGIMEN OF 1 COURSE

REACTIONS (1)
  - Pulmonary artery thrombosis [Unknown]
